FAERS Safety Report 11029119 (Version 2)
Quarter: 2015Q2

REPORT INFORMATION
  Report Type: Spontaneous
  Country: US (occurrence: US)
  Receive Date: 20150414
  Receipt Date: 20150524
  Transmission Date: 20150821
  Serious: No
  Sender: FDA-Public Use
  Company Number: US-JNJFOC-20150218932

PATIENT
  Sex: Male
  Weight: 87.09 kg

DRUGS (3)
  1. ZYTIGA [Suspect]
     Active Substance: ABIRATERONE ACETATE
     Indication: PROSTATE CANCER
     Route: 048
     Dates: start: 20140716
  2. UNSPECIFIED J+ J DRUG [Suspect]
     Active Substance: UNSPECIFIED INGREDIENT
     Indication: PRODUCT USED FOR UNKNOWN INDICATION
     Route: 065
  3. PREDNISONE. [Concomitant]
     Active Substance: PREDNISONE
     Indication: PROSTATE CANCER
     Route: 048
     Dates: start: 20140716

REACTIONS (5)
  - Insomnia [Recovered/Resolved]
  - Muscle disorder [Recovering/Resolving]
  - Feeling jittery [Recovered/Resolved]
  - Arthritis [Not Recovered/Not Resolved]
  - Somnolence [Recovered/Resolved]
